FAERS Safety Report 7685430-7 (Version None)
Quarter: 2011Q3

REPORT INFORMATION
  Report Type: 
  Country: None (occurrence: None)
  Receive Date: 20110816
  Receipt Date: 20101018
  Transmission Date: 20111222
  Serious: No
  Sender: FDA-Public Use
  Company Number: US-BAYER-201040058NA

PATIENT
  Sex: Female

DRUGS (3)
  1. MIRENA [Suspect]
     Indication: MENORRHAGIA
     Dosage: 20 ?G/D, CONT
     Route: 015
     Dates: start: 20100819
  2. MIRENA [Suspect]
     Dosage: 20 ?G/D, CONT
     Route: 015
  3. MIRENA [Suspect]
     Dosage: 20 ?G/D, CONT
     Route: 015

REACTIONS (5)
  - GENITAL HAEMORRHAGE [None]
  - VAGINAL HAEMORRHAGE [None]
  - FEELING ABNORMAL [None]
  - UNINTENTIONAL MEDICAL DEVICE REMOVAL BY PATIENT [None]
  - DEVICE EXPULSION [None]
